FAERS Safety Report 4444642-6 (Version None)
Quarter: 2004Q3

REPORT INFORMATION
  Report Type: 
  Country: None (occurrence: None)
  Receive Date: 20040902
  Receipt Date: 20040820
  Transmission Date: 20050211
  Serious: Yes (Other)
  Sender: FDA-Public Use
  Company Number: 2004058142

PATIENT
  Age: 63 Year
  Sex: Male
  Weight: 89.3586 kg

DRUGS (7)
  1. VFEND [Suspect]
     Indication: ASPERGILLOSIS
     Dosage: UNK (UNK, UNKNOWN), INTRAVENOUS
     Route: 042
     Dates: start: 20040401, end: 20040601
  2. ANTINEOPLASTIC AGENTS (ANTINEOPLASTIC AGENTS) [Suspect]
     Indication: LEUKAEMIA
     Dosage: UNK (UNK, UNKNOWN), UNKNOWN
     Route: 065
     Dates: start: 20040401, end: 20040401
  3. WARFARIN SODIUM [Suspect]
     Indication: THROMBOSIS
     Dosage: UNK (UNK, 1 IN 1 D); ORAL
     Route: 048
     Dates: start: 20040601
  4. HYDROXYCARBAMIDE [Concomitant]
  5. LORATADINE [Concomitant]
  6. ANTINEOPLASTIC AGENTS [Concomitant]
  7. ANTIBIOTICS [Concomitant]

REACTIONS (7)
  - DRUG INTERACTION [None]
  - HEART RATE INCREASED [None]
  - HEART RATE IRREGULAR [None]
  - JAUNDICE [None]
  - PNEUMONIA [None]
  - SPEECH DISORDER [None]
  - THROMBOSIS [None]
